FAERS Safety Report 17527638 (Version 1)
Quarter: 2020Q1

REPORT INFORMATION
  Report Type: Spontaneous
  Country: US (occurrence: US)
  Receive Date: 20200311
  Receipt Date: 20200311
  Transmission Date: 20200409
  Serious: No
  Sender: FDA-Public Use
  Company Number: US-009507513-2003USA003022

PATIENT
  Age: 69 Year
  Sex: Female

DRUGS (6)
  1. CYMBALTA [Concomitant]
     Active Substance: DULOXETINE HYDROCHLORIDE
  2. BUPRENORPHINE HYDROCHLORIDE. [Concomitant]
     Active Substance: BUPRENORPHINE HYDROCHLORIDE
  3. BELSOMRA [Suspect]
     Active Substance: SUVOREXANT
     Indication: INSOMNIA
     Dosage: 20 MG DAILY
     Route: 048
     Dates: start: 20200221
  4. CLONAZEPAM. [Concomitant]
     Active Substance: CLONAZEPAM
  5. ZOCOR [Concomitant]
     Active Substance: SIMVASTATIN
  6. DESVENLAFAXINE. [Concomitant]
     Active Substance: DESVENLAFAXINE

REACTIONS (2)
  - Drug ineffective [Recovering/Resolving]
  - Insomnia [Recovering/Resolving]

NARRATIVE: CASE EVENT DATE: 20200221
